FAERS Safety Report 9442828 (Version 4)
Quarter: 2013Q4

REPORT INFORMATION
  Report Type: Spontaneous
  Country: IT (occurrence: FR)
  Receive Date: 20130806
  Receipt Date: 20131008
  Transmission Date: 20140711
  Serious: Yes (Hospitalization)
  Sender: FDA-Public Use
  Company Number: FR-FRI-1000047390

PATIENT
  Age: 86 Year
  Sex: Female
  Weight: 60 kg

DRUGS (6)
  1. FOSFOMYCIN [Suspect]
     Indication: CYSTITIS
     Dosage: 3 GRAM
     Route: 048
     Dates: start: 20130526, end: 20130526
  2. ASPEGIC [Concomitant]
     Indication: ISCHAEMIC CARDIOMYOPATHY
     Dosage: 100 MG
  3. COVERSYL [Concomitant]
     Indication: ISCHAEMIC CARDIOMYOPATHY
     Dosage: 10 MG
  4. TAHOR [Concomitant]
     Indication: ISCHAEMIC CARDIOMYOPATHY
     Dosage: 10 MG
  5. UVEDOSE [Concomitant]
     Indication: CARDIAC DISORDER
  6. CLOPIDOGREL [Concomitant]
     Dosage: 75 MG

REACTIONS (6)
  - Product taste abnormal [Recovered/Resolved]
  - Malaise [Recovered/Resolved]
  - Loss of consciousness [Recovered/Resolved]
  - Depressed level of consciousness [Recovered/Resolved]
  - Euphoric mood [Recovered/Resolved]
  - Dizziness [Recovered/Resolved]
